FAERS Safety Report 9523962 (Version 1)
Quarter: 2013Q1

REPORT INFORMATION
  Report Type: Spontaneous
  Country: US (occurrence: None)
  Receive Date: 20130313
  Receipt Date: 20130313
  Transmission Date: 20140127
  Serious: Yes (Other)
  Sender: FDA-Public Use
  Company Number: 1000029966

PATIENT
  Age: 79 Year
  Sex: Female

DRUGS (5)
  1. SAVELLA [Suspect]
     Indication: FIBROMYALGIA
     Route: 048
     Dates: start: 20120419, end: 20120419
  2. NADOLOL (NADOLOL) (NADOLOL) [Concomitant]
  3. FLEXERIL (CYCLOBENZAPRINE) (CYCLOBENZAPRINE) [Concomitant]
  4. HYDROCHLOROTHIAZIDE (HYDROCHLOROTHIAZIDE)  (HYDROCHLOROTHIAZIDE) [Concomitant]
  5. LIPITOR (ATORVASTATIN CALCIUM) (ATORVASTATIN CALCIUM0 [Concomitant]

REACTIONS (3)
  - Somnolence [None]
  - Abdominal pain [None]
  - Hyperhidrosis [None]
